FAERS Safety Report 4735775-5 (Version None)
Quarter: 2005Q3

REPORT INFORMATION
  Report Type: 
  Country: None (occurrence: None)
  Receive Date: 20050721
  Receipt Date: 20050428
  Transmission Date: 20060218
  Serious: No
  Sender: FDA-Public Use
  Company Number: 2005SP000430

PATIENT
  Age: 47 Year
  Sex: Female

DRUGS (11)
  1. LUNESTA [Suspect]
     Indication: INSOMNIA
     Dosage: 3 MG;HS;ORAL
     Route: 048
     Dates: start: 20050427, end: 20050428
  2. DITROPAN XL [Concomitant]
  3. ALLEGRA [Concomitant]
  4. ABILIFY [Concomitant]
  5. IMDUR [Concomitant]
  6. LEXAPRO [Concomitant]
  7. LIPITOR [Concomitant]
  8. TOPAMAX [Concomitant]
  9. NEURONTIN [Concomitant]
  10. KLONOPIN [Concomitant]
  11. AMBIEN [Concomitant]

REACTIONS (4)
  - DIARRHOEA [None]
  - DYSGEUSIA [None]
  - MIDDLE INSOMNIA [None]
  - TINNITUS [None]
